FAERS Safety Report 6761147-8 (Version None)
Quarter: 2010Q2

REPORT INFORMATION
  Report Type: 
  Country: None (occurrence: None)
  Receive Date: 20100608
  Receipt Date: 20100602
  Transmission Date: 20101027
  Serious: Yes (Other)
  Sender: FDA-Public Use
  Company Number: TR-ELI_LILLY_AND_COMPANY-TR201006000990

PATIENT
  Sex: Female

DRUGS (3)
  1. HUMULIN R [Suspect]
     Dosage: UNK, UNKNOWN
     Route: 058
     Dates: start: 20100102, end: 20100220
  2. HUMULIN N [Suspect]
     Indication: GESTATIONAL DIABETES
     Dosage: UNK, UNKNOWN
     Route: 058
     Dates: start: 20100102, end: 20100220
  3. FOLBIOL [Concomitant]
     Dosage: UNK UNK, DAILY (1/D)
     Route: 048
     Dates: start: 20100102, end: 20100218

REACTIONS (2)
  - ABORTION SPONTANEOUS [None]
  - DRUG EXPOSURE DURING PREGNANCY [None]
